FAERS Safety Report 5249565-0 (Version None)
Quarter: 2007Q1

REPORT INFORMATION
  Report Type: 
  Country: None (occurrence: None)
  Receive Date: 20070228
  Receipt Date: 20060307
  Transmission Date: 20070707
  Serious: No
  Sender: FDA-Public Use
  Company Number: US-GLAXOSMITHKLINE-A0596487A

PATIENT
  Age: 27 Year
  Sex: Female

DRUGS (8)
  1. IMITREX [Suspect]
     Indication: MIGRAINE
     Dosage: 6MG AS REQUIRED
     Route: 058
     Dates: start: 20060201
  2. ULTRAM [Concomitant]
  3. PHENERGAN HCL [Concomitant]
  4. KETEK [Concomitant]
  5. ASTELIN [Concomitant]
  6. PRILOSEC [Concomitant]
  7. TOPAMAX [Concomitant]
  8. EFFEXOR XR [Concomitant]

REACTIONS (3)
  - DRUG INEFFECTIVE [None]
  - INJECTION SITE PAIN [None]
  - PHARMACEUTICAL PRODUCT COMPLAINT [None]
